FAERS Safety Report 13843035 (Version 2)
Quarter: 2018Q1

REPORT INFORMATION
  Report Type: Spontaneous
  Country: DK (occurrence: DK)
  Receive Date: 20170808
  Receipt Date: 20180328
  Transmission Date: 20180508
  Serious: Yes (Hospitalization)
  Sender: FDA-Public Use
  Company Number: DK-GLAXOSMITHKLINE-DK2017121861

PATIENT
  Age: 44 Year
  Sex: Female

DRUGS (1)
  1. RELVAR ELLIPTA [Suspect]
     Active Substance: FLUTICASONE FUROATE\VILANTEROL TRIFENATATE
     Indication: ASTHMA
     Dosage: STRENGTH: 184+ 22 MICR
     Route: 055
     Dates: start: 20170419, end: 20170612

REACTIONS (8)
  - Vision blurred [Unknown]
  - Tremor [Recovering/Resolving]
  - Palpitations [Recovering/Resolving]
  - Anxiety [Recovering/Resolving]
  - Headache [Unknown]
  - Nausea [Unknown]
  - Dizziness [Unknown]
  - Muscle tightness [Unknown]

NARRATIVE: CASE EVENT DATE: 201705
